FAERS Safety Report 4374338-0 (Version None)
Quarter: 2004Q2

REPORT INFORMATION
  Report Type: 
  Country: None (occurrence: None)
  Receive Date: 20040609
  Receipt Date: 20040602
  Transmission Date: 20050107
  Serious: Yes (Death)
  Sender: FDA-Public Use
  Company Number: PHHO2004PH07809

PATIENT
  Sex: 0

DRUGS (1)
  1. GLEEVEC [Suspect]
     Indication: CHRONIC MYELOID LEUKAEMIA

REACTIONS (3)
  - CELLULITIS [None]
  - PNEUMONIA [None]
  - SEPSIS [None]
